FAERS Safety Report 7417155-7 (Version None)
Quarter: 2011Q2

REPORT INFORMATION
  Report Type: 
  Country: None (occurrence: None)
  Receive Date: 20110415
  Receipt Date: 20091122
  Transmission Date: 20111010
  Serious: Yes (Other)
  Sender: FDA-Public Use
  Company Number: US-BAYER-2011-005930

PATIENT
  Age: 43 Year
  Sex: Male
  Weight: 88 kg

DRUGS (20)
  1. HEPARIN [Concomitant]
  2. PROTAMINE SULFATE [Concomitant]
     Dosage: 500 MG, UNK
     Route: 042
  3. DOPAMINE HCL [Concomitant]
     Dosage: CONTINUED NEED ON 10-OCT-97
     Dates: end: 19971014
  4. MAGNESIUM SULFATE [Concomitant]
     Dosage: 2 G, UNK
     Route: 042
  5. DARVOCET [Concomitant]
     Dosage: UNK
     Dates: start: 19890101
  6. TRASYLOL [Suspect]
     Dosage: 50 CC PER HOUR
     Route: 042
     Dates: start: 19971007, end: 19971007
  7. MANNITOL [Concomitant]
  8. LEVOPHED [Concomitant]
     Dosage: CONTINUED NEED ON 10-OCT-97
  9. PROCAINAMIDE [Concomitant]
     Dosage: UNK
     Dates: start: 19971015
  10. LIDOCAINE [Concomitant]
     Dosage: UNK
     Dates: start: 19971016
  11. VERSED [Concomitant]
  12. CARDIOPLEGIA [Concomitant]
     Dosage: 2200 ML, UNK
     Route: 042
  13. NITROGLYCERIN [Concomitant]
  14. MILRINONE [Concomitant]
  15. TRASYLOL [Suspect]
     Indication: CORONARY ARTERY BYPASS
     Dosage: 100 ML, LOADING DOSE
     Route: 042
     Dates: start: 19971007, end: 19971007
  16. SUFENTANIL CITRATE [Concomitant]
  17. EPINEPHRINE [Concomitant]
     Dosage: CONTINUED NEED ON 10-OCT-97
  18. POTASSIUM CHLORIDE [Concomitant]
  19. RED BLOOD CELLS [Concomitant]
     Dosage: 4 U, UNK
     Dates: start: 19971007
  20. ANCEF [Concomitant]

REACTIONS (10)
  - UNEVALUABLE EVENT [None]
  - PAIN [None]
  - RENAL FAILURE [None]
  - ANXIETY [None]
  - STRESS [None]
  - RENAL INJURY [None]
  - EMOTIONAL DISTRESS [None]
  - INJURY [None]
  - RENAL IMPAIRMENT [None]
  - FEAR [None]
